FAERS Safety Report 24442571 (Version 1)
Quarter: 2024Q4

REPORT INFORMATION
  Report Type: Report from Study
  Country: US (occurrence: US)
  Receive Date: 20241016
  Receipt Date: 20241016
  Transmission Date: 20250115
  Serious: Yes (Other)
  Sender: ALEXION PHARMACEUTICALS
  Company Number: US-AstraZeneca-CH-00722221A

PATIENT
  Weight: 76.19 kg

DRUGS (4)
  1. FASENRA [Suspect]
     Active Substance: BENRALIZUMAB
     Indication: Asthma
     Dosage: AT WEEKS 0, 4, AND 8 FOLLOWED BY EVERY 8 WEEKS THEREAFTER
  2. FASENRA [Suspect]
     Active Substance: BENRALIZUMAB
     Dosage: AT WEEKS 0, 4, AND 8 FOLLOWED BY EVERY 8 WEEKS THEREAFTER
  3. FASENRA [Suspect]
     Active Substance: BENRALIZUMAB
     Dosage: AT WEEKS 0, 4, AND 8 FOLLOWED BY EVERY 8 WEEKS THEREAFTER
  4. FASENRA [Suspect]
     Active Substance: BENRALIZUMAB
     Dosage: AT WEEKS 0, 4, AND 8 FOLLOWED BY EVERY 8 WEEKS THEREAFTER

REACTIONS (2)
  - Neoplasm malignant [Unknown]
  - Weight decreased [Unknown]
